FAERS Safety Report 13770018 (Version 2)
Quarter: 2017Q3

REPORT INFORMATION
  Report Type: Spontaneous
  Country: IT (occurrence: IT)
  Receive Date: 20170719
  Receipt Date: 20170724
  Transmission Date: 20171127
  Serious: Yes (Other)
  Sender: FDA-Public Use
  Company Number: IT-TEVA-786758ACC

PATIENT
  Age: 43 Year
  Sex: Female

DRUGS (4)
  1. PACLITAXEL TEVA - TEVA ITALIA S.R.L. [Suspect]
     Active Substance: PACLITAXEL
     Indication: BREAST CANCER
     Dosage: 135 MG CYCLICAL
     Route: 042
     Dates: start: 20170705, end: 20170705
  2. DESAMETASONE FOSFATO HOSPIRA 4MG/ML SOLUZIONE INIETTABILE - ITALIA S.R [Concomitant]
     Indication: ALLERGY PROPHYLAXIS
     Dosage: 12 MG
     Route: 042
     Dates: start: 20170705, end: 20170705
  3. TRIMETON - 10 MG/1 ML SOLUZIONE INIETTABILE - BAYER S.P.A [Concomitant]
     Indication: ALLERGY PROPHYLAXIS
     Dosage: 10 MG
     Route: 042
     Dates: start: 20170705, end: 20170705
  4. GRANISETRON B. BRAUN - 1 MG/ML - MELSUNGEN AG [Concomitant]
     Indication: PROPHYLAXIS OF NAUSEA AND VOMITING
     Dosage: 3 MG
     Route: 042
     Dates: start: 20170705, end: 20170705

REACTIONS (3)
  - Throat tightness [Recovered/Resolved]
  - Cough [Recovered/Resolved]
  - Dysphonia [Recovered/Resolved]

NARRATIVE: CASE EVENT DATE: 20170705
